FAERS Safety Report 9750002 (Version 3)
Quarter: 2014Q2

REPORT INFORMATION
  Report Type: Spontaneous
  Country: US (occurrence: US)
  Receive Date: 20131212
  Receipt Date: 20140418
  Transmission Date: 20141212
  Serious: No
  Sender: FDA-Public Use
  Company Number: US-009507513-1311USA007061

PATIENT
  Sex: Male

DRUGS (4)
  1. VICTRELIS [Suspect]
     Indication: HEPATITIS C
     Dosage: UNK UNK, TID
     Route: 048
     Dates: start: 20131114
  2. REBETOL [Suspect]
     Indication: HEPATITIS C
     Dosage: 6 A DAY
     Dates: start: 20131017, end: 2013
  3. REBETOL [Suspect]
     Dosage: 600 MG PER DAY, BID
     Route: 048
     Dates: start: 2013
  4. PEGASYS [Suspect]
     Indication: HEPATITIS C
     Dosage: UNK, QW
     Route: 058
     Dates: start: 20131017

REACTIONS (16)
  - Blood disorder [Unknown]
  - Feeling abnormal [Unknown]
  - Myalgia [Unknown]
  - Anaemia [Unknown]
  - Haemoglobin decreased [Unknown]
  - Fatigue [Unknown]
  - Dyspnoea [Unknown]
  - Dizziness [Unknown]
  - Dysgeusia [Unknown]
  - Dry mouth [Unknown]
  - Cough [Unknown]
  - Alopecia [Unknown]
  - Dysgeusia [Unknown]
  - Malaise [Unknown]
  - Fatigue [Unknown]
  - Decreased appetite [Unknown]
